FAERS Safety Report 4399583-X (Version None)
Quarter: 2004Q3

REPORT INFORMATION
  Report Type: 
  Country: None (occurrence: None)
  Receive Date: 20040716
  Receipt Date: 20040429
  Transmission Date: 20050211
  Serious: Yes (Hospitalization)
  Sender: FDA-Public Use
  Company Number: PHRM2004FR01717

PATIENT
  Age: 64 Year
  Sex: Male
  Weight: 99 kg

DRUGS (5)
  1. FRACTAL [Suspect]
     Dosage: 40 MG, QD
     Route: 048
  2. TENORDATE [Suspect]
     Dosage: 1 DF/DAY
     Route: 048
  3. IZILOX [Suspect]
     Route: 048
     Dates: start: 20040214, end: 20040221
  4. ALDACTAZINE [Suspect]
     Dosage: 1 DF/DAY
     Route: 048
  5. ZOLTUM [Suspect]
     Dosage: 1 DF/DAY
     Route: 048
     Dates: start: 19900615

REACTIONS (5)
  - C-REACTIVE PROTEIN INCREASED [None]
  - CLOSTRIDIUM COLITIS [None]
  - DIARRHOEA [None]
  - URTICARIA [None]
  - WHITE BLOOD CELL COUNT INCREASED [None]
